FAERS Safety Report 6779844-7 (Version None)
Quarter: 2010Q2

REPORT INFORMATION
  Report Type: 
  Country: None (occurrence: None)
  Receive Date: 20100618
  Receipt Date: 20100607
  Transmission Date: 20101027
  Serious: Yes (Hospitalization)
  Sender: FDA-Public Use
  Company Number: JP-JNJFOC-20100404645

PATIENT
  Age: 48 Year
  Sex: Female
  Weight: 40 kg

DRUGS (13)
  1. REMICADE [Suspect]
     Indication: PSORIATIC ARTHROPATHY
     Dosage: 2 TOTAL DOSES
     Route: 042
  2. REMICADE [Suspect]
     Route: 042
  3. REMICADE [Suspect]
     Dosage: 2 TOTAL DOSES
     Route: 042
  4. PREDNISOLONE [Suspect]
     Indication: PSORIASIS
     Dosage: NOT SUSPECT BEGINNING THIS DATE
     Route: 048
  5. PREDNISOLONE [Suspect]
     Route: 048
  6. METHOTREXATE [Suspect]
     Indication: PSORIASIS
     Route: 048
  7. METHOTREXATE [Suspect]
     Route: 048
  8. METHOTREXATE [Suspect]
     Dosage: NOT SUSPECT BEGINNING THIS DATE
     Route: 048
  9. ANTEBATE [Concomitant]
     Indication: PSORIASIS
  10. LOXONIN [Concomitant]
     Indication: PSORIASIS
     Route: 048
  11. MUCOSTA [Concomitant]
     Indication: PSORIASIS
  12. ALFAROL [Concomitant]
     Indication: PROPHYLAXIS
     Dosage: DOSE 0.5 RG
     Route: 048
  13. FOLIAMIN [Concomitant]
     Indication: PROPHYLAXIS
     Route: 048

REACTIONS (2)
  - FURUNCLE [None]
  - HERPES ZOSTER [None]
